FAERS Safety Report 14571924 (Version 1)
Quarter: 2018Q1

REPORT INFORMATION
  Report Type: Spontaneous
  Country: GB (occurrence: GB)
  Receive Date: 20180226
  Receipt Date: 20180226
  Transmission Date: 20180509
  Serious: Yes (Death, Other)
  Sender: FDA-Public Use
  Company Number: GB-SHENZHEN TECHDOW PHARMACEUTICAL CO. LTD-GB-2018TEC0000005

PATIENT
  Sex: Male

DRUGS (1)
  1. HEPARIN SODIUM INJECTION USP, PRESERVATIVE FREE [Suspect]
     Active Substance: HEPARIN SODIUM
     Indication: PRODUCT USED FOR UNKNOWN INDICATION
     Dosage: UNK

REACTIONS (5)
  - Fall [Unknown]
  - Death [Fatal]
  - Upper limb fracture [Unknown]
  - Confusional state [Unknown]
  - Hip fracture [Unknown]
